FAERS Safety Report 6301599-0 (Version None)
Quarter: 2009Q3

REPORT INFORMATION
  Report Type: 
  Country: None (occurrence: None)
  Receive Date: 20090807
  Receipt Date: 20090727
  Transmission Date: 20100115
  Serious: Yes (Hospitalization, Other)
  Sender: FDA-Public Use
  Company Number: US-ELI_LILLY_AND_COMPANY-US200907006560

PATIENT

DRUGS (2)
  1. GEMCITABINE HCL [Suspect]
     Dosage: 800 MG/M2, OTHER
     Route: 042
  2. EPIRUBICIN [Concomitant]
     Dosage: 10 MG/M2, OTHER
     Route: 042

REACTIONS (2)
  - FATIGUE [None]
  - PERFORMANCE STATUS DECREASED [None]
